FAERS Safety Report 8384374-5 (Version None)
Quarter: 2012Q2

REPORT INFORMATION
  Report Type: 
  Country: None (occurrence: None)
  Receive Date: 20120524
  Receipt Date: 20120516
  Transmission Date: 20120825
  Serious: Yes (Other)
  Sender: FDA-Public Use
  Company Number: JP-VERTEX PHARMACEUTICALS INC.-AE-2012-007456

PATIENT
  Age: 37 Year
  Sex: Male

DRUGS (4)
  1. RIBAVARIN [Concomitant]
     Route: 048
     Dates: start: 20120419, end: 20120501
  2. TELAVIC (TELAPREVIR) [Suspect]
     Indication: HEPATITIS C
     Route: 048
     Dates: start: 20120328, end: 20120501
  3. PEGINTERFERON ALFA-2B [Concomitant]
     Route: 051
     Dates: start: 20120328, end: 20120426
  4. RIBAVARIN [Concomitant]
     Indication: HEPATITIS C
     Route: 048
     Dates: start: 20120328, end: 20120418

REACTIONS (1)
  - BLOOD CREATININE INCREASED [None]
